FAERS Safety Report 8801444 (Version 1)
Quarter: 2012Q4

REPORT INFORMATION
  Report Type: 
  Country: US (occurrence: US)
  Receive Date: 20120921
  Receipt Date: 20120921
  Transmission Date: 20130627
  Serious: Yes (Other)
  Sender: FDA-Public Use
  Company Number: US-ASTRAZENECA-2012SE71710

PATIENT
  Sex: Male
  Weight: 136.1 kg

DRUGS (1)
  1. BRILINTA [Suspect]
     Route: 048
     Dates: start: 2012, end: 2012

REACTIONS (1)
  - Electrocardiogram abnormal [Recovered/Resolved]
